FAERS Safety Report 10514148 (Version 2)
Quarter: 2014Q4

REPORT INFORMATION
  Report Type: Spontaneous
  Country: FR (occurrence: FR)
  Receive Date: 20141013
  Receipt Date: 20141106
  Transmission Date: 20150528
  Serious: Yes (Other)
  Sender: FDA-Public Use
  Company Number: FR-TEVA-514427ISR

PATIENT
  Sex: Female

DRUGS (1)
  1. LEELOO 0.1MG/0.02MG [Suspect]
     Active Substance: ETHINYL ESTRADIOL\LEVONORGESTREL

REACTIONS (2)
  - Haemorrhage [Unknown]
  - Drug dose omission [Unknown]
